FAERS Safety Report 6034860-8 (Version None)
Quarter: 2009Q1

REPORT INFORMATION
  Report Type: 
  Country: None (occurrence: None)
  Receive Date: 20090112
  Receipt Date: 20090109
  Transmission Date: 20090719
  Serious: Yes (Hospitalization)
  Sender: FDA-Public Use
  Company Number: US-BRISTOL-MYERS SQUIBB COMPANY-14460216

PATIENT
  Age: 62 Year
  Sex: Female
  Weight: 57 kg

DRUGS (4)
  1. TANESPIMYCIN (NCI/17-ALLYLAMINOGELDANAMYCIN [Suspect]
     Indication: NEOPLASM
     Dosage: THERAPY INITIATED ON 03NOV2008
     Route: 042
     Dates: start: 20081205, end: 20081205
  2. BORTEZOMIB [Suspect]
     Indication: NEOPLASM
     Dosage: THERAPY INITIATED ON 03NOV2008
     Route: 042
     Dates: start: 20081205, end: 20081205
  3. COUMADIN [Suspect]
  4. PREDNISONE TAB [Suspect]

REACTIONS (1)
  - ABDOMINAL PAIN [None]
